FAERS Safety Report 18023785 (Version 3)
Quarter: 2020Q3

REPORT INFORMATION
  Report Type: Report from Study
  Country: CA (occurrence: CA)
  Receive Date: 20200714
  Receipt Date: 20200728
  Transmission Date: 20201103
  Serious: Yes (Death, Hospitalization)
  Sender: FDA-Public Use
  Company Number: NVSC2020CA196805

PATIENT
  Sex: Male

DRUGS (1)
  1. VOTRIENT [Suspect]
     Active Substance: PAZOPANIB HYDROCHLORIDE
     Indication: METASTATIC RENAL CELL CARCINOMA
     Dosage: 800 MG
     Route: 048
     Dates: start: 20200616

REACTIONS (5)
  - Quadriplegia [Unknown]
  - Dehiscence [Unknown]
  - Pleural effusion [Unknown]
  - Death [Fatal]
  - Illness [Unknown]
